FAERS Safety Report 9529153 (Version 1)
Quarter: 2013Q3

REPORT INFORMATION
  Report Type: Not Available
  Country: US (occurrence: US)
  Receive Date: 20130916
  Receipt Date: 20130916
  Transmission Date: 20140515
  Serious: No
  Sender: FDA-Public Use
  Company Number: US-LUNDBECK-DKLU1090088

PATIENT
  Sex: Female

DRUGS (5)
  1. ONFI [Suspect]
     Indication: LENNOX-GASTAUT SYNDROME
     Dates: start: 20130314, end: 20130402
  2. TRILEPTAL [Concomitant]
     Indication: PRODUCT USED FOR UNKNOWN INDICATION
  3. DILANTIN [Concomitant]
     Indication: PRODUCT USED FOR UNKNOWN INDICATION
  4. KLONOPIN [Concomitant]
     Indication: PRODUCT USED FOR UNKNOWN INDICATION
  5. TRAZODONE [Concomitant]
     Indication: PRODUCT USED FOR UNKNOWN INDICATION

REACTIONS (4)
  - Abnormal behaviour [Unknown]
  - Anger [Unknown]
  - Somnolence [Unknown]
  - Irritability [Unknown]
